FAERS Safety Report 5079089-5 (Version None)
Quarter: 2006Q3

REPORT INFORMATION
  Report Type: 
  Country: None (occurrence: None)
  Receive Date: 20060808
  Receipt Date: 20060727
  Transmission Date: 20061208
  Serious: Yes (Death, Hospitalization)
  Sender: FDA-Public Use
  Company Number: GXKR2006GB04359

PATIENT
  Age: 89 Year
  Sex: 0

DRUGS (6)
  1. MIRTAZAPINE [Suspect]
     Indication: CONFUSIONAL STATE
     Dosage: 10 MG, QD, ORAL
     Route: 048
     Dates: start: 20060613, end: 20060614
  2. ASPIRIN [Concomitant]
  3. BISOPROLOL FUMARATE [Concomitant]
  4. DIGOXIN [Concomitant]
  5. ACETAMINOPHEN [Concomitant]
  6. VALPROATE SODIUM [Concomitant]

REACTIONS (2)
  - LOSS OF CONSCIOUSNESS [None]
  - SOMNOLENCE [None]
